FAERS Safety Report 18838667 (Version 1)
Quarter: 2021Q1

REPORT INFORMATION
  Report Type: Spontaneous
  Country: AU (occurrence: AU)
  Receive Date: 20210203
  Receipt Date: 20210203
  Transmission Date: 20210419
  Serious: Yes (Other)
  Sender: FDA-Public Use
  Company Number: AU-MYLANLABS-2021M1006613

PATIENT
  Age: 18 Year
  Sex: Male

DRUGS (8)
  1. PROGESTERONE. [Suspect]
     Active Substance: PROGESTERONE
     Indication: GENDER REASSIGNMENT THERAPY
     Dosage: 100 MILLIGRAM, QD
     Route: 065
  2. CYPROTERONE [Suspect]
     Active Substance: CYPROTERONE
     Indication: GENDER REASSIGNMENT THERAPY
     Dosage: 25 MILLIGRAM, QD
     Route: 065
  3. ESTRADIOL. [Suspect]
     Active Substance: ESTRADIOL
     Indication: HORMONE THERAPY
  4. ESTRADIOL. [Suspect]
     Active Substance: ESTRADIOL
     Indication: HORMONE THERAPY
  5. ESTRADIOL. [Suspect]
     Active Substance: ESTRADIOL
     Indication: GENDER REASSIGNMENT THERAPY
     Dosage: UNK
     Route: 061
  6. ESTRADIOL. [Suspect]
     Active Substance: ESTRADIOL
     Indication: GENDER REASSIGNMENT THERAPY
     Dosage: 100 MILLIGRAM, 6?12 MONTHLY
     Route: 059
  7. CYPROTERONE [Suspect]
     Active Substance: CYPROTERONE
     Indication: HORMONE THERAPY
  8. PROGESTERONE. [Suspect]
     Active Substance: PROGESTERONE
     Indication: HORMONE THERAPY

REACTIONS (1)
  - Hyperprolactinaemia [Recovered/Resolved]
